FAERS Safety Report 15120324 (Version 1)
Quarter: 2018Q3

REPORT INFORMATION
  Report Type: Spontaneous
  Country: IS (occurrence: IS)
  Receive Date: 20180709
  Receipt Date: 20180709
  Transmission Date: 20181010
  Serious: Yes (Hospitalization)
  Sender: FDA-Public Use
  Company Number: IS-TEVA-2018-IS-922697

PATIENT
  Age: 76 Year
  Sex: Male
  Weight: 85 kg

DRUGS (3)
  1. HJARTAMAGN?L 75 MG S?RU?OLNAR T?FLUR [Suspect]
     Active Substance: ASPIRIN
     Indication: PERIPHERAL VASCULAR DISORDER
     Dosage: 1
  2. CLOPIDOGREL [Suspect]
     Active Substance: CLOPIDOGREL BISULFATE
     Indication: CORONARY ARTERY DISEASE
     Dosage: 1
     Dates: start: 20160906
  3. HJARTAMAGN?L 75 MG S?RU?OLNAR T?FLUR [Suspect]
     Active Substance: ASPIRIN
     Indication: CEREBROVASCULAR DISORDER

REACTIONS (6)
  - Anaemia [Recovered/Resolved]
  - Gastrointestinal angiodysplasia [None]
  - Chest pain [Recovered/Resolved]
  - Gastrointestinal vascular malformation haemorrhagic [None]
  - Gastrointestinal haemorrhage [Recovered/Resolved]
  - Haematochezia [Recovered/Resolved]

NARRATIVE: CASE EVENT DATE: 20180516
